FAERS Safety Report 6031949-4 (Version None)
Quarter: 2009Q1

REPORT INFORMATION
  Report Type: 
  Country: None (occurrence: None)
  Receive Date: 20090108
  Receipt Date: 20081231
  Transmission Date: 20090719
  Serious: Yes (Disabling, Other)
  Sender: FDA-Public Use
  Company Number: US-SANOFI-SYNTHELABO-A03200900033

PATIENT
  Sex: Male
  Weight: 74.37 kg

DRUGS (5)
  1. FISH OIL [Concomitant]
     Indication: DRUG USE FOR UNKNOWN INDICATION
     Dosage: UNK
     Route: 065
     Dates: end: 20080801
  2. COENZYME Q10 [Concomitant]
     Indication: DRUG USE FOR UNKNOWN INDICATION
     Dosage: UNK
     Route: 065
     Dates: end: 20080801
  3. NIACIN [Concomitant]
     Indication: DRUG USE FOR UNKNOWN INDICATION
     Dosage: UNK
     Route: 065
     Dates: end: 20080801
  4. PLAVIX [Suspect]
     Indication: CORONARY ARTERIAL STENT INSERTION
     Route: 048
     Dates: start: 20060901, end: 20071201
  5. PLAVIX [Suspect]
     Dosage: 75 MG THREE TIMES A WEEK
     Route: 048
     Dates: start: 20071201

REACTIONS (3)
  - BLOOD GLUCOSE INCREASED [None]
  - HEMIPARESIS [None]
  - PARKINSON'S DISEASE [None]
